FAERS Safety Report 7036041-8 (Version None)
Quarter: 2010Q4

REPORT INFORMATION
  Report Type: 
  Country: None (occurrence: None)
  Receive Date: 20101007
  Receipt Date: 20101007
  Transmission Date: 20110411
  Serious: Yes (Hospitalization)
  Sender: FDA-Public Use
  Company Number: None

PATIENT
  Age: 78 Year
  Sex: Male

DRUGS (1)
  1. AMIODARONE HCL [Suspect]
     Dosage: 400 MG EVERY DAY PO
     Route: 048
     Dates: start: 20081124, end: 20101006

REACTIONS (10)
  - DIARRHOEA [None]
  - DIZZINESS [None]
  - ELECTROCARDIOGRAM QT PROLONGED [None]
  - FAECES DISCOLOURED [None]
  - FALL [None]
  - HYPOPHAGIA [None]
  - HYPOTENSION [None]
  - PRESYNCOPE [None]
  - VOMITING [None]
  - WEIGHT DECREASED [None]
